FAERS Safety Report 8135451-5 (Version None)
Quarter: 2012Q1

REPORT INFORMATION
  Report Type: 
  Country: None (occurrence: None)
  Receive Date: 20120214
  Receipt Date: 20120209
  Transmission Date: 20120608
  Serious: Yes (Death, Other)
  Sender: FDA-Public Use
  Company Number: BR-ROCHE-786772

PATIENT
  Sex: Female

DRUGS (3)
  1. BELATACEPT [Suspect]
     Indication: RENAL TRANSPLANT
     Dosage: DOSE REPORTED AS: 1 DAY
     Route: 042
     Dates: start: 20070512, end: 20110606
  2. MYCOPHENOLATE MOFETIL (CELLCEPT) [Suspect]
     Indication: RENAL TRANSPLANT
     Dosage: DOSE REPORTED AS: 1 DAY
     Route: 065
     Dates: start: 20071121, end: 20110822
  3. PREDNISONE TAB [Suspect]
     Indication: RENAL TRANSPLANT
     Dosage: DOSE REPORTED AS: 1 DAY
     Route: 065

REACTIONS (1)
  - OESOPHAGEAL SQUAMOUS CELL CARCINOMA [None]
